FAERS Safety Report 9845090 (Version 1)
Quarter: 2014Q1

REPORT INFORMATION
  Report Type: Spontaneous
  Country: US (occurrence: None)
  Receive Date: 20140122
  Receipt Date: 20140122
  Transmission Date: 20141002
  Serious: Yes (Hospitalization, Other)
  Sender: FDA-Public Use
  Company Number: 2010S1000570

PATIENT
  Age: 65 Year
  Sex: Male
  Weight: 72.58 kg

DRUGS (9)
  1. FLEET PHOSPHO-SODA [Suspect]
     Indication: COLONOSCOPY
     Route: 048
     Dates: start: 20051214, end: 20051214
  2. CATAPRESS TTS-3 (CLONIDINE) (TRANSDERMAL PATCH) [Concomitant]
  3. LIPITOR (ATORVASTATIN CALCIUM) (20 MILLIGRAM) [Concomitant]
  4. NORVASC (AMLODIPINE BESILATE) [Concomitant]
  5. HYDROCHLOROTHIAZIDE (HYDROCHLOROTHIAZIDE) [Concomitant]
  6. ASPIRIN (ACETYLSALICYLIC ACID) [Concomitant]
  7. PAXIL (PAROXETINE HYDROCHLORIDE) (20 MILLIGRAM) [Concomitant]
  8. RESTORIL (CHLORMEZANONE) [Concomitant]
  9. POTASSIUM (POTASSIUM) [Concomitant]

REACTIONS (2)
  - Renal failure acute [None]
  - Renal failure chronic [None]
